FAERS Safety Report 16353016 (Version 1)
Quarter: 2019Q2

REPORT INFORMATION
  Report Type: Report from Study
  Country: US (occurrence: US)
  Receive Date: 20190524
  Receipt Date: 20190524
  Transmission Date: 20190711
  Serious: Yes (Other)
  Sender: FDA-Public Use
  Company Number: US-JNJFOC-20190530933

PATIENT
  Sex: Male

DRUGS (11)
  1. BENZONATATE. [Concomitant]
     Active Substance: BENZONATATE
  2. MULTI VITAMIN [Concomitant]
     Active Substance: VITAMINS
  3. METRONIDAZOLE. [Concomitant]
     Active Substance: METRONIDAZOLE
  4. ASCORBIC ACID. [Concomitant]
     Active Substance: ASCORBIC ACID
  5. RITUXAN [Concomitant]
     Active Substance: RITUXIMAB
  6. PANTOPRAZOLE SODIUM. [Concomitant]
     Active Substance: PANTOPRAZOLE SODIUM
  7. IMBRUVICA [Suspect]
     Active Substance: IBRUTINIB
     Indication: WALDENSTROM^S MACROGLOBULINAEMIA
     Route: 048
     Dates: start: 20190302, end: 2019
  8. LEVOFLOXACIN. [Concomitant]
     Active Substance: LEVOFLOXACIN
  9. POLYETHYLENE GLYCOL [Concomitant]
     Active Substance: POLYETHYLENE GLYCOLS
  10. TRIAMCINOLONE ACETONIDE. [Concomitant]
     Active Substance: TRIAMCINOLONE ACETONIDE
  11. FISH OIL [Concomitant]
     Active Substance: FISH OIL

REACTIONS (1)
  - Cerebral haemorrhage [Recovering/Resolving]
